FAERS Safety Report 5044984-X (Version None)
Quarter: 2006Q3

REPORT INFORMATION
  Report Type: 
  Country: None (occurrence: None)
  Receive Date: 20060705
  Receipt Date: 20060615
  Transmission Date: 20061208
  Serious: Yes (Other)
  Sender: FDA-Public Use
  Company Number: US_0504115821

PATIENT
  Age: 11 Year
  Sex: Female
  Weight: 31.8 kg

DRUGS (4)
  1. STRATTERA [Suspect]
     Indication: ATTENTION DEFICIT/HYPERACTIVITY DISORDER
     Dosage: SEE IMAGE
     Route: 048
     Dates: start: 20040615, end: 20040930
  2. STRATTERA [Suspect]
     Indication: ATTENTION DEFICIT/HYPERACTIVITY DISORDER
     Dosage: SEE IMAGE
     Route: 048
  3. STRATTERA [Suspect]
     Indication: ATTENTION DEFICIT/HYPERACTIVITY DISORDER
     Dosage: SEE IMAGE
     Route: 048
  4. STRATTERA [Suspect]
     Indication: ATTENTION DEFICIT/HYPERACTIVITY DISORDER
     Dosage: SEE IMAGE
     Route: 048

REACTIONS (12)
  - ARTHRALGIA [None]
  - AUTOIMMUNE HEPATITIS [None]
  - BLOOD ALBUMIN DECREASED [None]
  - CHRONIC HEPATITIS [None]
  - COAGULOPATHY [None]
  - FATIGUE [None]
  - HEPATIC FIBROSIS [None]
  - HEPATITIS ACUTE [None]
  - LIVER PALPABLE SUBCOSTAL [None]
  - PROTHROMBIN TIME PROLONGED [None]
  - PYREXIA [None]
  - WEIGHT DECREASED [None]
